FAERS Safety Report 6304671-4 (Version None)
Quarter: 2009Q3

REPORT INFORMATION
  Report Type: 
  Country: None (occurrence: None)
  Receive Date: 20090806
  Receipt Date: 20090723
  Transmission Date: 20100115
  Serious: Yes (Other)
  Sender: FDA-Public Use
  Company Number: DSA_40517_2009

PATIENT
  Sex: Male

DRUGS (3)
  1. (DILZEM - DILTIAZEM) (NOT SPECIFIED) [Suspect]
     Indication: DRUG USE FOR UNKNOWN INDICATION
     Dosage: DF ORAL
     Route: 048
  2. DUROGESIC (DUROGESIC - FENTANYL) (NOT SPECIFIED) [Suspect]
     Indication: PAIN
     Dosage: 75 UG QD TRANSDERMAL
     Route: 062
     Dates: start: 20090625, end: 20090625
  3. TRAMAL /00599202/ (TRAMAL - TRAMADOL HYDROCHLORIDE) (NOT SPECIFIED) [Suspect]
     Indication: PAIN
     Dosage: 100 MG BID
     Dates: start: 20090612

REACTIONS (8)
  - ACCIDENTAL OVERDOSE [None]
  - ALTERED STATE OF CONSCIOUSNESS [None]
  - AMPUTATION [None]
  - ARTERIAL DISORDER [None]
  - HYPERCAPNIA [None]
  - HYPOXIA [None]
  - RESPIRATORY ACIDOSIS [None]
  - RESPIRATORY DEPRESSION [None]
